FAERS Safety Report 6306435-4 (Version None)
Quarter: 2009Q3

REPORT INFORMATION
  Report Type: 
  Country: None (occurrence: None)
  Receive Date: 20090812
  Receipt Date: 20090731
  Transmission Date: 20100115
  Serious: Yes (Other)
  Sender: FDA-Public Use
  Company Number: US-ELI_LILLY_AND_COMPANY-US200907003344

PATIENT
  Sex: Female

DRUGS (6)
  1. FORTEO [Suspect]
     Indication: OSTEOPOROSIS
     Dosage: 20 UG, DAILY (1/D)
     Dates: start: 20080401, end: 20090701
  2. CARAFATE [Concomitant]
     Dosage: TWO TEASPOONS EVERY SIX HOURS (1 GM/10ML)
  3. DEXLANSOPRAZOLE [Concomitant]
     Dosage: 60 MG, DAILY (1/D)
  4. ANTACID TAB [Concomitant]
     Dates: end: 20090701
  5. PRILOSEC [Concomitant]
     Dates: end: 20090701
  6. ASPIRIN [Concomitant]
     Dosage: UNK, UNK
     Dates: end: 20090701

REACTIONS (3)
  - ANAEMIA [None]
  - GASTRIC HAEMORRHAGE [None]
  - GASTRITIS [None]
